FAERS Safety Report 7914915-0 (Version None)
Quarter: 2011Q4

REPORT INFORMATION
  Report Type: 
  Country: None (occurrence: None)
  Receive Date: 20111115
  Receipt Date: 20111109
  Transmission Date: 20120403
  Serious: Yes (Hospitalization, Other)
  Sender: FDA-Public Use
  Company Number: US-PFIZER INC-2011274984

PATIENT
  Sex: Female
  Weight: 74.83 kg

DRUGS (7)
  1. ATENOLOL [Concomitant]
     Indication: HYPERTENSION
     Dosage: UNK
  2. LYRICA [Suspect]
     Indication: CANCER PAIN
     Dosage: 100 MG, 3X/DAY
     Route: 048
     Dates: start: 20060101
  3. HYDROCODONE [Concomitant]
     Indication: PAIN
     Dosage: UNK
  4. LYRICA [Suspect]
     Indication: NEUROPATHY PERIPHERAL
  5. LISINOPRIL [Concomitant]
     Indication: HYPERTENSION
     Dosage: UNK
  6. HYDROCHLOROTHIAZIDE [Concomitant]
     Indication: HYPERTENSION
     Dosage: UNK
  7. CYMBALTA [Concomitant]
     Dosage: UNK

REACTIONS (8)
  - WITHDRAWAL SYNDROME [None]
  - HEADACHE [None]
  - NEURALGIA [None]
  - BACK PAIN [None]
  - NAUSEA [None]
  - DEPRESSION [None]
  - PAIN [None]
  - PAIN IN EXTREMITY [None]
